FAERS Safety Report 6150973-4 (Version None)
Quarter: 2009Q2

REPORT INFORMATION
  Report Type: 
  Country: None (occurrence: None)
  Receive Date: 20090410
  Receipt Date: 20090401
  Transmission Date: 20091009
  Serious: Yes (Other)
  Sender: FDA-Public Use
  Company Number: PHHY2009GB09919

PATIENT
  Sex: Male

DRUGS (2)
  1. CLOZARIL [Suspect]
     Dosage: 300 MG, ONCE/SINGLE
     Route: 048
  2. CLOZARIL [Suspect]
     Dosage: 300 MG, QD
     Route: 048

REACTIONS (8)
  - INCOHERENT [None]
  - MALAISE [None]
  - PYREXIA [None]
  - SALIVARY HYPERSECRETION [None]
  - SEDATION [None]
  - TACHYCARDIA [None]
  - WRIST FRACTURE [None]
  - WRIST SURGERY [None]
